FAERS Safety Report 10425409 (Version 1)
Quarter: 2014Q3

REPORT INFORMATION
  Report Type: Spontaneous
  Country: US (occurrence: None)
  Receive Date: 20140725
  Receipt Date: 20140725
  Transmission Date: 20150326
  Serious: No
  Sender: FDA-Public Use
  Company Number: AP356-00743-SPO-US

PATIENT
  Age: 57 Year
  Sex: Female
  Weight: 87.5 kg

DRUGS (5)
  1. ESTRACE (ESTRADIOL) [Concomitant]
  2. TRAZODONE [Concomitant]
     Active Substance: TRAZODONE HYDROCHLORIDE
  3. MULTIVITAMIN (DAILY MULTIVITAMIN) [Concomitant]
  4. BELVIQ [Suspect]
     Active Substance: LORCASERIN HYDROCHLORIDE
     Indication: WEIGHT DECREASED
     Route: 048
     Dates: start: 201403, end: 2014
  5. CYMBALTA [Suspect]
     Active Substance: DULOXETINE HYDROCHLORIDE
     Indication: DEPRESSION
     Route: 048
     Dates: start: 201402

REACTIONS (2)
  - Fatigue [None]
  - Drug interaction [None]

NARRATIVE: CASE EVENT DATE: 2014
